FAERS Safety Report 15077138 (Version 1)
Quarter: 2018Q2

REPORT INFORMATION
  Report Type: Spontaneous
  Country: US (occurrence: US)
  Receive Date: 20180607
  Receipt Date: 20180607
  Transmission Date: 20180711
  Serious: Yes (Other)
  Sender: FDA-Public Use
  Company Number: None

PATIENT
  Age: 32 Year
  Sex: Female
  Weight: 57.15 kg

DRUGS (6)
  1. BUPROPION XL [Concomitant]
     Active Substance: BUPROPION
     Dates: start: 20161017
  2. SEROQUEL [Concomitant]
     Active Substance: QUETIAPINE FUMARATE
     Dates: start: 20171110
  3. NALTREXONE [Suspect]
     Active Substance: NALTREXONE
     Indication: DRUG WITHDRAWAL MAINTENANCE THERAPY
     Route: 060
     Dates: start: 20180528, end: 20180607
  4. PRISTIQ EXTENDED-RELEASE [Concomitant]
     Active Substance: DESVENLAFAXINE SUCCINATE
     Dates: start: 20170511
  5. ZOFRAN [Concomitant]
     Active Substance: ONDANSETRON HYDROCHLORIDE
     Dates: start: 20170525
  6. BUSPIRONE [Concomitant]
     Active Substance: BUSPIRONE HYDROCHLORIDE
     Dates: start: 20170821

REACTIONS (4)
  - Chills [None]
  - Nausea [None]
  - Migraine [None]
  - Vomiting [None]

NARRATIVE: CASE EVENT DATE: 20180607
